FAERS Safety Report 9047734 (Version 1)
Quarter: 2013Q1

REPORT INFORMATION
  Report Type: Spontaneous
  Country: US (occurrence: US)
  Receive Date: 20130204
  Receipt Date: 20130204
  Transmission Date: 20140127
  Serious: No
  Sender: FDA-Public Use
  Company Number: US-AMGEN-USASP2013003801

PATIENT
  Sex: Male

DRUGS (2)
  1. ENBREL [Suspect]
     Indication: PSORIASIS
     Dosage: 50 MG, QWK
     Dates: start: 201210, end: 201211
  2. CYCLOSPORINE [Concomitant]
     Dosage: UNK

REACTIONS (2)
  - Nausea [Recovered/Resolved]
  - Vomiting [Recovered/Resolved]
